FAERS Safety Report 8203340-3 (Version None)
Quarter: 2012Q1

REPORT INFORMATION
  Report Type: 
  Country: None (occurrence: None)
  Receive Date: 20120312
  Receipt Date: 20120306
  Transmission Date: 20120608
  Serious: Yes (Death)
  Sender: FDA-Public Use
  Company Number: DE-ASTRAZENECA-2012SE11780

PATIENT
  Age: 85 Year
  Sex: Male

DRUGS (20)
  1. SEROQUEL [Suspect]
     Route: 048
     Dates: start: 20110804, end: 20110804
  2. HALDOL [Suspect]
     Route: 048
     Dates: start: 20110730
  3. FUROSEMIDE [Concomitant]
     Route: 048
     Dates: start: 20110715, end: 20110717
  4. SEROQUEL [Suspect]
     Indication: AGITATION
     Route: 048
     Dates: start: 20110722, end: 20110722
  5. DIPIDOLOR [Concomitant]
     Dosage: 7.5 - 15 MG PER DAY
     Route: 048
     Dates: start: 20110721, end: 20110727
  6. SEROQUEL [Suspect]
     Route: 048
     Dates: start: 20110805
  7. PANTOPRAZOLE [Concomitant]
     Route: 048
     Dates: start: 20110727
  8. DIPIDOLOR [Concomitant]
     Route: 048
     Dates: start: 20110804
  9. VOLTAREN [Concomitant]
     Route: 048
     Dates: start: 20110727
  10. OXAZEPAM [Concomitant]
     Route: 048
     Dates: start: 20110725, end: 20110729
  11. SEROQUEL [Suspect]
     Route: 048
     Dates: start: 20110723, end: 20110723
  12. EMBOLEX [Concomitant]
     Route: 058
     Dates: start: 20110717
  13. ASPIRIN [Concomitant]
     Route: 048
  14. FUROSEMIDE [Concomitant]
     Route: 048
     Dates: start: 20110718, end: 20110721
  15. OXAZEPAM [Concomitant]
     Route: 048
     Dates: start: 20110730, end: 20110803
  16. FUROSEMIDE [Concomitant]
     Route: 048
     Dates: start: 20110722
  17. BERODUAL [Concomitant]
     Dates: start: 20110718
  18. SEROQUEL [Suspect]
     Route: 048
     Dates: start: 20110724, end: 20110803
  19. METOPROLOL SUCCINATE [Concomitant]
     Route: 048
     Dates: end: 20110804
  20. OXAZEPAM [Concomitant]
     Route: 048
     Dates: start: 20110804, end: 20110805

REACTIONS (2)
  - OFF LABEL USE [None]
  - RENAL FAILURE [None]
